FAERS Safety Report 6517918-6 (Version None)
Quarter: 2009Q4

REPORT INFORMATION
  Report Type: 
  Country: None (occurrence: None)
  Receive Date: 20091224
  Receipt Date: 20091211
  Transmission Date: 20100525
  Serious: Yes (Hospitalization)
  Sender: FDA-Public Use
  Company Number: GB-ROCHE-651172

PATIENT
  Sex: Male
  Weight: 71.7 kg

DRUGS (5)
  1. BEVACIZUMAB [Suspect]
     Indication: COLON CANCER
     Dosage: FROM: INFUSION. CYCLE 1.
     Route: 042
     Dates: start: 20090112
  2. BEVACIZUMAB [Suspect]
     Dosage: CYCLE 16 DATE OF MOST RECENT DOSE 30 NOV 2009.
     Route: 042
  3. CAPECITABINE [Suspect]
     Indication: COLON CANCER
     Route: 048
     Dates: start: 20090112
  4. CAPECITABINE [Suspect]
     Dosage: CYCLE 8. DATE OF MOST RECENT DOSE: 29 JUNE 2009.DOSE; 1250 MG/M2 BD
     Route: 048
  5. METFORMIN HCL [Concomitant]
     Route: 048

REACTIONS (1)
  - THROMBOSIS [None]
